FAERS Safety Report 5255353-1 (Version None)
Quarter: 2007Q1

REPORT INFORMATION
  Report Type: 
  Country: None (occurrence: None)
  Receive Date: 20070305
  Receipt Date: 20070222
  Transmission Date: 20070707
  Serious: Yes (Other)
  Sender: FDA-Public Use
  Company Number: PHFR2007GB00883

PATIENT
  Sex: Female

DRUGS (2)
  1. VOLTAREN [Suspect]
     Indication: PAIN
     Dosage: 4 TABLETS
     Route: 048
     Dates: start: 20070219
  2. VOLTAREN [Suspect]
     Dosage: 4 TABLETS
     Route: 048
     Dates: start: 20070220

REACTIONS (3)
  - ABDOMINAL PAIN [None]
  - ILEOSTOMY [None]
  - OVARIAN CANCER [None]
